FAERS Safety Report 8473748-X (Version None)
Quarter: 2012Q2

REPORT INFORMATION
  Report Type: 
  Country: None (occurrence: None)
  Receive Date: 20120628
  Receipt Date: 20111220
  Transmission Date: 20120825
  Serious: Yes (Death)
  Sender: FDA-Public Use
  Company Number: US-MYLANLABS-2011S1021591

PATIENT
  Age: 47 Year
  Sex: Female

DRUGS (9)
  1. ABILIFY [Concomitant]
     Dates: start: 20110713
  2. MIRALAX /00754501/ [Concomitant]
  3. MIRTAZAPINE [Concomitant]
  4. DULCOLAX [Concomitant]
  5. DIOVAN [Concomitant]
  6. VITAMIN B-12 [Concomitant]
     Route: 030
  7. SIMVASTATIN [Concomitant]
  8. CLOZAPINE [Suspect]
  9. CLONAZEPAM [Concomitant]

REACTIONS (1)
  - SEPSIS [None]
